FAERS Safety Report 4908866-3 (Version None)
Quarter: 2006Q1

REPORT INFORMATION
  Report Type: 
  Country: None (occurrence: None)
  Receive Date: 20060210
  Receipt Date: 20051209
  Transmission Date: 20060701
  Serious: No
  Sender: FDA-Public Use
  Company Number: US-GLAXOSMITHKLINE-A0585254A

PATIENT
  Age: 52 Year
  Sex: Male

DRUGS (6)
  1. PAXIL CR [Suspect]
     Indication: DEPRESSION
     Dosage: 25MG PER DAY
     Route: 048
     Dates: start: 20051001, end: 20051101
  2. PAROXETINE HCL [Suspect]
     Indication: DEPRESSION
     Route: 048
  3. NORVASC [Concomitant]
  4. DIOVAN [Concomitant]
  5. LIPITOR [Concomitant]
  6. ACIPHEX [Concomitant]

REACTIONS (3)
  - AGITATION [None]
  - ANGER [None]
  - SOCIAL AVOIDANT BEHAVIOUR [None]
